FAERS Safety Report 15616937 (Version 7)
Quarter: 2019Q1

REPORT INFORMATION
  Report Type: Report from Study
  Country: US (occurrence: US)
  Receive Date: 20181114
  Receipt Date: 20190305
  Transmission Date: 20190417
  Serious: Yes (Death, Life-Threatening, Hospitalization)
  Sender: FDA-Public Use
  Company Number: US-CELGENEUS-USA-20180909031

PATIENT
  Age: 77 Year
  Sex: Male

DRUGS (31)
  1. VALACYCLOVIR [Concomitant]
     Active Substance: VALACYCLOVIR HYDROCHLORIDE
     Indication: PROPHYLAXIS
     Dosage: 500 MILLIGRAM
     Route: 048
     Dates: start: 20180828, end: 20180918
  2. INSULIN LISPRO [Concomitant]
     Active Substance: INSULIN LISPRO
     Indication: DIABETES MELLITUS
     Dosage: 2-10 UNITS
     Route: 058
     Dates: start: 20180828, end: 20180919
  3. ALBUMIN HUMAN [Concomitant]
     Active Substance: ALBUMIN HUMAN
     Indication: HYPOALBUMINAEMIA
     Route: 041
     Dates: start: 20180918, end: 20181008
  4. ALLOPURINOL. [Concomitant]
     Active Substance: ALLOPURINOL
     Indication: PROPHYLAXIS
     Dosage: 300 MILLIGRAM
     Route: 048
     Dates: start: 20180918, end: 20180918
  5. AMLODIPINE [Concomitant]
     Active Substance: AMLODIPINE BESYLATE
     Indication: HYPERTENSION
     Dosage: 10 MILLIGRAM
     Route: 048
     Dates: start: 20180113
  6. LINEZOLID. [Concomitant]
     Active Substance: LINEZOLID
     Indication: CELLULITIS
     Dosage: 1200 MILLIGRAM
     Route: 041
     Dates: start: 20180907, end: 20180911
  7. ACYCLOVIR. [Concomitant]
     Active Substance: ACYCLOVIR
     Indication: ANTIVIRAL PROPHYLAXIS
     Dosage: 5 MG/KG
     Route: 041
     Dates: start: 20180920, end: 20181012
  8. AMIODARONE [Concomitant]
     Active Substance: AMIODARONE
     Indication: ATRIAL FIBRILLATION
  9. ACETYLCYSTEINE. [Concomitant]
     Active Substance: ACETYLCYSTEINE
     Indication: ASTHMA
     Dosage: 800 MILLIGRAM
     Route: 041
     Dates: start: 20180929, end: 201810
  10. AMINOCAPROIC ACID. [Concomitant]
     Active Substance: AMINOCAPROIC ACID
     Indication: DIFFUSE ALVEOLAR DAMAGE
     Route: 041
     Dates: start: 20181011, end: 20181011
  11. AMIODARONE [Concomitant]
     Active Substance: AMIODARONE
     Indication: VENTRICULAR TACHYCARDIA
     Dosage: 450 MILLIGRAM
     Route: 041
     Dates: start: 20180921, end: 20180922
  12. CISATRACURIUM. [Concomitant]
     Active Substance: CISATRACURIUM
     Indication: SEDATION
     Dosage: 8390 GRAM
     Route: 041
     Dates: start: 20181011, end: 20181011
  13. VENETOCLAX. [Concomitant]
     Active Substance: VENETOCLAX
     Indication: MYELODYSPLASTIC SYNDROME
     Dosage: 400 MILLIGRAM
     Route: 048
     Dates: start: 20180913, end: 20180918
  14. VALACYCLOVIR [Concomitant]
     Active Substance: VALACYCLOVIR HYDROCHLORIDE
     Indication: ANTIVIRAL PROPHYLAXIS
  15. HYDROCHLOROTHIAZIDE. [Concomitant]
     Active Substance: HYDROCHLOROTHIAZIDE
     Indication: HYPERTENSION
     Dosage: 12.5 MILLIGRAM
     Route: 048
     Dates: start: 20180828
  16. AZTREONAM. [Concomitant]
     Active Substance: AZTREONAM
     Indication: CELLULITIS
     Dosage: 25 MILLIGRAM
     Route: 041
     Dates: start: 20180827, end: 20180828
  17. LINEZOLID. [Concomitant]
     Active Substance: LINEZOLID
     Indication: PROPHYLAXIS
     Dosage: 1200 MILLIGRAM
     Route: 041
     Dates: start: 20180827, end: 20180903
  18. ADENOSINE. [Concomitant]
     Active Substance: ADENOSINE
     Indication: SUPRAVENTRICULAR TACHYCARDIA
     Route: 041
     Dates: start: 20180922, end: 20180922
  19. CISATRACURIUM. [Concomitant]
     Active Substance: CISATRACURIUM
     Indication: SUPPORTIVE CARE
  20. ALLOPURINOL. [Concomitant]
     Active Substance: ALLOPURINOL
     Indication: NEPHROLITHIASIS
     Dosage: 300 MILLIGRAM
     Route: 048
     Dates: start: 20180920, end: 20180924
  21. LEVOTHYROXINE. [Concomitant]
     Active Substance: LEVOTHYROXINE
     Indication: HYPOTHYROIDISM
     Dosage: 25 MILLIGRAM
     Route: 048
     Dates: start: 20180828, end: 20180919
  22. LEVOTHYROXINE. [Concomitant]
     Active Substance: LEVOTHYROXINE
     Dosage: 20 MILLIGRAM
     Route: 041
     Dates: start: 20180920
  23. ALLOPURINOL. [Concomitant]
     Active Substance: ALLOPURINOL
     Indication: PROPHYLAXIS
     Dosage: 100 MILLIGRAM
     Route: 041
     Dates: start: 20180920, end: 20180924
  24. SODIUM CHLORIDE. [Concomitant]
     Active Substance: SODIUM CHLORIDE
     Indication: PROPHYLAXIS
     Dosage: 75 ML/HR
     Route: 041
     Dates: start: 20180913, end: 20180917
  25. DOXAZOSIN [Concomitant]
     Active Substance: DOXAZOSIN\DOXAZOSIN MESYLATE
     Indication: HYPERTENSION
     Dosage: 4 MILLIGRAM
     Route: 048
     Dates: start: 20180828, end: 20180919
  26. INSULIN LISPRO [Concomitant]
     Active Substance: INSULIN LISPRO
     Dosage: 15 IU (INTERNATIONAL UNIT)
     Route: 058
     Dates: start: 20180829, end: 20180919
  27. AMLODIPINE [Concomitant]
     Active Substance: AMLODIPINE BESYLATE
     Indication: ANGINA PECTORIS
  28. MAGNESIUM SULFATE. [Concomitant]
     Active Substance: MAGNESIUM SULFATE
     Indication: HYPOMAGNESAEMIA
     Route: 041
     Dates: start: 20181010, end: 20181010
  29. VIDAZA [Suspect]
     Active Substance: AZACITIDINE
     Indication: MYELODYSPLASTIC SYNDROME
     Dosage: 75 MILLIGRAM/SQ. METER
     Route: 041
     Dates: start: 20180913, end: 20180919
  30. CEFEPIME [Concomitant]
     Active Substance: CEFEPIME HYDROCHLORIDE
     Indication: CELLULITIS
     Dosage: 6000 MILLIGRAM
     Route: 041
     Dates: start: 20180828, end: 20180905
  31. MAGNESIUM SULFATE. [Concomitant]
     Active Substance: MAGNESIUM SULFATE
     Indication: PROPHYLAXIS

REACTIONS (2)
  - Pneumonia fungal [Recovered/Resolved]
  - Pneumonia fungal [Fatal]

NARRATIVE: CASE EVENT DATE: 20180919
